FAERS Safety Report 21040083 (Version 1)
Quarter: 2022Q3

REPORT INFORMATION
  Report Type: Spontaneous
  Country: BR (occurrence: BR)
  Receive Date: 20220704
  Receipt Date: 20220704
  Transmission Date: 20221026
  Serious: Yes (Other)
  Sender: FDA-Public Use
  Company Number: BR-TEVA BRAZIL-2022-BR-2051037

PATIENT
  Age: 44 Year
  Sex: Female
  Weight: 58.8 kg

DRUGS (3)
  1. CARBOPLATIN [Suspect]
     Active Substance: CARBOPLATIN
     Indication: Endometrial adenocarcinoma
     Dosage: 433 MG
     Route: 065
     Dates: start: 20220512
  2. PACLITAXEL [Concomitant]
     Active Substance: PACLITAXEL
     Indication: Product used for unknown indication
     Route: 065
     Dates: start: 20220512
  3. SIMVASTATIN [Concomitant]
     Active Substance: SIMVASTATIN
     Indication: Product used for unknown indication
     Route: 065

REACTIONS (5)
  - Face oedema [Recovered/Resolved]
  - Malaise [Recovered/Resolved]
  - Oedema peripheral [Recovered/Resolved]
  - Erythema [Recovered/Resolved]
  - Tachycardia [Recovered/Resolved]

NARRATIVE: CASE EVENT DATE: 20220624
